FAERS Safety Report 9235630 (Version 1)
Quarter: 2013Q2

REPORT INFORMATION
  Report Type: Spontaneous
  Country: US (occurrence: None)
  Receive Date: 20130416
  Receipt Date: 20130416
  Transmission Date: 20140414
  Serious: Yes (Hospitalization)
  Sender: FDA-Public Use
  Company Number: None

PATIENT
  Age: 9 Year
  Sex: Female
  Weight: 27 kg

DRUGS (5)
  1. CYCLOPHOSPHAMIDE [Suspect]
     Dates: end: 20130402
  2. DOXORUBICIN HYDROCHLORIDE [Suspect]
     Dates: end: 20130330
  3. METHOTREXATE [Suspect]
     Dates: end: 20130329
  4. PREDNISONE [Suspect]
  5. VINCRISTINE SULFATE [Suspect]
     Dates: end: 20130329

REACTIONS (6)
  - Febrile neutropenia [None]
  - Haemoglobin decreased [None]
  - Abdominal pain lower [None]
  - Inflammation [None]
  - Caecitis [None]
  - Appendicitis [None]
